FAERS Safety Report 17487232 (Version 1)
Quarter: 2020Q1

REPORT INFORMATION
  Report Type: Spontaneous
  Country: JP (occurrence: JP)
  Receive Date: 20200303
  Receipt Date: 20200303
  Transmission Date: 20200409
  Serious: Yes (Hospitalization, Other)
  Sender: FDA-Public Use
  Company Number: JP-BRISTOL-MYERS SQUIBB COMPANY-BMS-2020-016845

PATIENT
  Age: 72 Year
  Sex: Male
  Weight: 59.7 kg

DRUGS (1)
  1. ELIQUIS [Suspect]
     Active Substance: APIXABAN
     Indication: PRODUCT USED FOR UNKNOWN INDICATION
     Dosage: UNK
     Route: 065

REACTIONS (3)
  - Shock haemorrhagic [Recovering/Resolving]
  - Vascular pseudoaneurysm ruptured [Recovering/Resolving]
  - Peritoneal haemorrhage [Recovering/Resolving]
